FAERS Safety Report 4506173-4 (Version None)
Quarter: 2004Q4

REPORT INFORMATION
  Report Type: 
  Country: None (occurrence: None)
  Receive Date: 20041025
  Receipt Date: 20031204
  Transmission Date: 20050328
  Serious: Yes (Other)
  Sender: FDA-Public Use
  Company Number: US-JNJFOC-20030703370

PATIENT
  Age: 47 Year
  Sex: Female
  Weight: 83.9154 kg

DRUGS (3)
  1. REMICADE [Suspect]
     Indication: RHEUMATOID ARTHRITIS
     Dosage: 300 MG, 1 IN 1 DAY, INTRAVENOUS
     Route: 042
     Dates: start: 20020601
  2. REMICADE [Suspect]
     Indication: RHEUMATOID ARTHRITIS
     Dosage: 300 MG, 1 IN 1 DAY, INTRAVENOUS
     Route: 042
     Dates: start: 20030626
  3. METHOTREXATE [Concomitant]

REACTIONS (1)
  - INFUSION RELATED REACTION [None]
